FAERS Safety Report 5154037-8 (Version None)
Quarter: 2006Q4

REPORT INFORMATION
  Report Type: 
  Country: None (occurrence: None)
  Receive Date: 20061120
  Receipt Date: 20061109
  Transmission Date: 20070319
  Serious: Yes (Other)
  Sender: FDA-Public Use
  Company Number: CH-AVENTIS-200621605GDDC

PATIENT
  Age: 15 Year
  Sex: Male
  Weight: 47 kg

DRUGS (3)
  1. ARAVA [Suspect]
     Indication: JUVENILE ARTHRITIS
     Route: 048
     Dates: start: 20041011, end: 20060807
  2. ENBREL [Suspect]
     Indication: JUVENILE ARTHRITIS
     Route: 058
     Dates: start: 20060512, end: 20060807
  3. NO MENTIN OF CONCOMITANT DRUGS [Concomitant]

REACTIONS (9)
  - CSF TEST ABNORMAL [None]
  - FACIAL PALSY [None]
  - HEADACHE [None]
  - LYME DISEASE [None]
  - NAUSEA [None]
  - NEUROBORRELIOSIS [None]
  - OFF LABEL USE [None]
  - PLEOCYTOSIS [None]
  - VOMITING [None]
